FAERS Safety Report 5590719-1 (Version None)
Quarter: 2008Q1

REPORT INFORMATION
  Report Type: 
  Country: None (occurrence: None)
  Receive Date: 20080110
  Receipt Date: 20080102
  Transmission Date: 20080703
  Serious: Yes (Hospitalization)
  Sender: FDA-Public Use
  Company Number: 2008BI000192

PATIENT
  Age: 58 Year
  Sex: Female

DRUGS (1)
  1. AVONEX [Suspect]
     Indication: MULTIPLE SCLEROSIS
     Dosage: 30 UG; QW; IM
     Route: 030
     Dates: start: 20010612

REACTIONS (11)
  - ACCIDENT [None]
  - FALL [None]
  - HEARING IMPAIRED [None]
  - LIMB INJURY [None]
  - MASS [None]
  - MIGRAINE [None]
  - NAIL BED INJURY [None]
  - NAIL DISORDER [None]
  - ROAD TRAFFIC ACCIDENT [None]
  - TEMPERATURE INTOLERANCE [None]
  - VISUAL ACUITY REDUCED [None]
